FAERS Safety Report 10578161 (Version 1)
Quarter: 2014Q4

REPORT INFORMATION
  Report Type: Spontaneous
  Country: US (occurrence: None)
  Receive Date: 20141111
  Receipt Date: 20141111
  Transmission Date: 20150529
  Serious: No
  Sender: FDA-Public Use
  Company Number: None

PATIENT
  Age: 36 Year
  Sex: Female
  Weight: 81.65 kg

DRUGS (2)
  1. ZANAFLEX [Suspect]
     Active Substance: TIZANIDINE HYDROCHLORIDE
     Indication: PAIN
     Dosage: 3 PILLS AT BEDTIME  TAKEN BY MOUTH
     Route: 048
     Dates: start: 20140501, end: 20141010
  2. ZANAFLEX [Suspect]
     Active Substance: TIZANIDINE HYDROCHLORIDE
     Indication: MIGRAINE
     Dosage: 3 PILLS AT BEDTIME  TAKEN BY MOUTH
     Route: 048
     Dates: start: 20140501, end: 20141010

REACTIONS (6)
  - Dysarthria [None]
  - Nightmare [None]
  - Fear [None]
  - Confusional state [None]
  - Dizziness [None]
  - Middle insomnia [None]

NARRATIVE: CASE EVENT DATE: 20141006
